FAERS Safety Report 4954602-4 (Version None)
Quarter: 2006Q1

REPORT INFORMATION
  Report Type: 
  Country: None (occurrence: None)
  Receive Date: 20060131
  Receipt Date: 20051121
  Transmission Date: 20060701
  Serious: Yes (Hospitalization, Other)
  Sender: FDA-Public Use
  Company Number: WAES 0511USA03822

PATIENT
  Age: 87 Year
  Sex: Female

DRUGS (7)
  1. PRIMAXIN [Suspect]
     Indication: PYREXIA
     Dosage: 500 MG/Q6H/IV
     Route: 042
     Dates: start: 20051109, end: 20051114
  2. LIPITOR [Concomitant]
  3. REGLAN [Concomitant]
  4. AMINO ACIDS [Concomitant]
  5. INFLUENZA VIRUS VACCINE [Concomitant]
  6. PNEUMOCOCCAL VACCINE [Concomitant]
  7. VANCOMYCIN [Concomitant]

REACTIONS (1)
  - TREMOR [None]
